FAERS Safety Report 22624353 (Version 1)
Quarter: 2023Q2

REPORT INFORMATION
  Report Type: Spontaneous
  Country: US (occurrence: None)
  Receive Date: 20230619
  Receipt Date: 20230619
  Transmission Date: 20230722
  Serious: Yes (Life-Threatening)
  Sender: FDA-Public Use
  Company Number: None

PATIENT
  Age: 55 Year
  Sex: Male
  Weight: 135 kg

DRUGS (7)
  1. TRULICITY [Suspect]
     Active Substance: DULAGLUTIDE
     Indication: Type 2 diabetes mellitus
     Dosage: FREQUENCY : WEEKLY;?
     Route: 030
     Dates: start: 20220710, end: 20230610
  2. LISINOPRIL [Concomitant]
     Active Substance: LISINOPRIL
  3. ATENOLOL [Concomitant]
     Active Substance: ATENOLOL
  4. HYDROCHLOROTHIAZIDE [Concomitant]
     Active Substance: HYDROCHLOROTHIAZIDE
  5. METFORMIN [Concomitant]
     Active Substance: METFORMIN HYDROCHLORIDE
  6. GLIPIZIDE [Concomitant]
     Active Substance: GLIPIZIDE
  7. ASPIRIN [Suspect]
     Active Substance: ASPIRIN

REACTIONS (7)
  - Illness [None]
  - Vomiting [None]
  - Blood pressure decreased [None]
  - Dizziness [None]
  - Dizziness [None]
  - Nausea [None]
  - Presyncope [None]

NARRATIVE: CASE EVENT DATE: 20230110
